FAERS Safety Report 12083439 (Version 3)
Quarter: 2016Q2

REPORT INFORMATION
  Report Type: Report from Study
  Country: AU (occurrence: AU)
  Receive Date: 20160217
  Receipt Date: 20160609
  Transmission Date: 20160815
  Serious: Yes (Hospitalization, Other)
  Sender: FDA-Public Use
  Company Number: AU-ROCHE-1712019

PATIENT
  Age: 64 Year
  Sex: Female
  Weight: 104 kg

DRUGS (13)
  1. ACTEMRA [Suspect]
     Active Substance: TOCILIZUMAB
     Route: 042
     Dates: start: 20160119
  2. ATORVASTATIN/EZETIMIBE [Concomitant]
     Active Substance: ATORVASTATIN\EZETIMIBE
     Route: 048
  3. ACTEMRA [Suspect]
     Active Substance: TOCILIZUMAB
     Route: 042
     Dates: start: 20151021
  4. ACTEMRA [Suspect]
     Active Substance: TOCILIZUMAB
     Route: 042
     Dates: start: 20151124
  5. ACTEMRA [Suspect]
     Active Substance: TOCILIZUMAB
     Indication: RHEUMATOID ARTHRITIS
     Dosage: ONGOING
     Route: 042
     Dates: start: 20140619
  6. ELASTOPLAST [Suspect]
     Active Substance: DEVICE
     Indication: PRODUCT USED FOR UNKNOWN INDICATION
     Route: 065
  7. ASPIRIN. [Suspect]
     Active Substance: ASPIRIN
     Indication: PRODUCT USED FOR UNKNOWN INDICATION
     Dosage: 1 IN THE MORNING
     Route: 065
  8. ACTEMRA [Suspect]
     Active Substance: TOCILIZUMAB
     Route: 042
     Dates: start: 20151222
  9. SULPHUR [Suspect]
     Active Substance: SULFUR
     Indication: PRODUCT USED FOR UNKNOWN INDICATION
     Route: 065
  10. CANDESARTAN [Concomitant]
     Active Substance: CANDESARTAN
     Route: 048
  11. FRUSEMIDE [Concomitant]
     Active Substance: FUROSEMIDE
     Route: 048
  12. ATENOLOL. [Concomitant]
     Active Substance: ATENOLOL
     Dosage: HALF IN MORNING
     Route: 048
  13. AMLODIPINE [Concomitant]
     Active Substance: AMLODIPINE BESYLATE
     Dosage: AT NIGHT
     Route: 048

REACTIONS (19)
  - Myocardial ischaemia [Unknown]
  - Application site vesicles [None]
  - Angina unstable [Recovered/Resolved]
  - Neutropenia [Unknown]
  - Dermatitis contact [Unknown]
  - Myopathy [Unknown]
  - Allergy to chemicals [Unknown]
  - Epistaxis [Unknown]
  - Asthma [Unknown]
  - Hypercholesterolaemia [Unknown]
  - Type 2 diabetes mellitus [Unknown]
  - Asthma [None]
  - Gastrointestinal haemorrhage [Unknown]
  - Vitamin D decreased [Unknown]
  - Drug hypersensitivity [None]
  - Rectal haemorrhage [None]
  - Hypertension [Unknown]
  - Lymphocyte morphology abnormal [Unknown]
  - Haemorrhage [None]

NARRATIVE: CASE EVENT DATE: 20160128
